FAERS Safety Report 6215306-3 (Version None)
Quarter: 2009Q2

REPORT INFORMATION
  Report Type: 
  Country: None (occurrence: None)
  Receive Date: 20090604
  Receipt Date: 20090601
  Transmission Date: 20091009
  Serious: Yes (Death, Hospitalization)
  Sender: FDA-Public Use
  Company Number: PHHY2009EC21360

PATIENT
  Age: 65 Year
  Sex: Female

DRUGS (2)
  1. DIOVAN [Suspect]
     Indication: HYPERTENSION
     Dosage: 80 MG, UNK
     Route: 048
     Dates: start: 20060101, end: 20090501
  2. ANTIARRHYTHMICS, CLASS I AND III [Concomitant]
     Indication: ARRHYTHMIA

REACTIONS (2)
  - CEREBROVASCULAR ACCIDENT [None]
  - GALLBLADDER OPERATION [None]
